FAERS Safety Report 5776463-6 (Version None)
Quarter: 2008Q2

REPORT INFORMATION
  Report Type: 
  Country: None (occurrence: None)
  Receive Date: 20080618
  Receipt Date: 20080610
  Transmission Date: 20081010
  Serious: Yes (Hospitalization, Other)
  Sender: FDA-Public Use
  Company Number: US-AMGEN-US273470

PATIENT
  Sex: Female
  Weight: 56 kg

DRUGS (2)
  1. PROCRIT [Suspect]
     Indication: RENAL FAILURE CHRONIC
     Route: 042
     Dates: start: 20030110, end: 20080301
  2. ARANESP [Suspect]
     Indication: RENAL FAILURE CHRONIC
     Route: 065

REACTIONS (3)
  - APLASIA PURE RED CELL [None]
  - MYELODYSPLASTIC SYNDROME [None]
  - THERAPEUTIC RESPONSE DECREASED [None]
